FAERS Safety Report 18174384 (Version 1)
Quarter: 2020Q3

REPORT INFORMATION
  Report Type: Spontaneous
  Country: US (occurrence: US)
  Receive Date: 20200820
  Receipt Date: 20200820
  Transmission Date: 20201103
  Serious: Yes (Hospitalization)
  Sender: FDA-Public Use
  Company Number: None

PATIENT
  Age: 49 Year
  Sex: Female

DRUGS (3)
  1. VITAMIN D, CALCIUM, VITAMIN K, BASAGLAR, OMEPRAZOLE, LISINOPRIL [Concomitant]
  2. PROAIR HFA, ADVAIR DISKU, B12, MULTI?VITAMIN, PROBIOTIC, ZYRTEC [Concomitant]
  3. XELJANZ [Suspect]
     Active Substance: TOFACITINIB CITRATE
     Indication: RHEUMATOID ARTHRITIS
     Route: 048
     Dates: start: 20200104

REACTIONS (2)
  - Therapy interrupted [None]
  - Dehydration [None]

NARRATIVE: CASE EVENT DATE: 20200812
